FAERS Safety Report 23069070 (Version 1)
Quarter: 2023Q4

REPORT INFORMATION
  Report Type: Spontaneous
  Country: US (occurrence: US)
  Receive Date: 20231016
  Receipt Date: 20231016
  Transmission Date: 20240110
  Serious: No
  Sender: FDA-Public Use
  Company Number: US-MYLANLABS-2023M1108214

PATIENT
  Sex: Female
  Weight: 48.08 kg

DRUGS (2)
  1. RIZATRIPTAN BENZOATE [Suspect]
     Active Substance: RIZATRIPTAN BENZOATE
     Indication: Headache
     Dosage: 5 MILLIGRAM, UNK
     Route: 065
     Dates: start: 2015
  2. RESTORIL [Concomitant]
     Active Substance: TEMAZEPAM
     Indication: Insomnia
     Dosage: 15 MILLIGRAM, QD (EVERY NIGHT)
     Route: 065

REACTIONS (4)
  - Hangover [Recovered/Resolved]
  - Palpitations [Recovered/Resolved]
  - Nausea [Recovered/Resolved]
  - Wrong technique in product usage process [Unknown]

NARRATIVE: CASE EVENT DATE: 20150101
